FAERS Safety Report 8814240 (Version 1)
Quarter: 2012Q4

REPORT INFORMATION
  Report Type: Spontaneous
  Country: US (occurrence: None)
  Receive Date: 20120926
  Receipt Date: 20120926
  Transmission Date: 20130627
  Serious: Yes (Hospitalization)
  Sender: FDA-Public Use
  Company Number: None

PATIENT
  Age: 66 Year
  Sex: Male
  Weight: 106.4 kg

DRUGS (2)
  1. BENDAMUSTINE [Suspect]
     Indication: CANCER
     Route: 042
     Dates: start: 20120913, end: 20120913
  2. RITUXIMAB [Suspect]
     Indication: CANCER
     Route: 042
     Dates: start: 20120913, end: 20120913

REACTIONS (7)
  - Pyrexia [None]
  - Rash [None]
  - Erythema multiforme [None]
  - Tachycardia [None]
  - Chills [None]
  - Mucosal inflammation [None]
  - Drug hypersensitivity [None]
